FAERS Safety Report 17427183 (Version 1)
Quarter: 2020Q1

REPORT INFORMATION
  Report Type: Report from Study
  Country: US (occurrence: US)
  Receive Date: 20200218
  Receipt Date: 20200218
  Transmission Date: 20200409
  Serious: No
  Sender: FDA-Public Use
  Company Number: NVSC2020US038802

PATIENT
  Age: 34 Year
  Sex: Female

DRUGS (2)
  1. TASIGNA [Suspect]
     Active Substance: NILOTINIB
     Indication: CHRONIC MYELOID LEUKAEMIA
     Dosage: UNK UNK, BID
     Route: 048
     Dates: start: 2017, end: 2018
  2. GLEEVEC [Suspect]
     Active Substance: IMATINIB MESYLATE
     Indication: CHRONIC MYELOID LEUKAEMIA
     Dosage: UNK UNK, QD
     Route: 048
     Dates: start: 2014, end: 2017

REACTIONS (6)
  - Bone pain [Unknown]
  - Myalgia [Unknown]
  - Nausea [Unknown]
  - Drug ineffective [Unknown]
  - Fluid retention [Unknown]
  - Gastritis [Unknown]

NARRATIVE: CASE EVENT DATE: 2014
